FAERS Safety Report 5333217-2 (Version None)
Quarter: 2007Q2

REPORT INFORMATION
  Report Type: 
  Country: None (occurrence: None)
  Receive Date: 20070524
  Receipt Date: 20070515
  Transmission Date: 20071010
  Serious: Yes (Other)
  Sender: FDA-Public Use
  Company Number: PHEH2007US03207

PATIENT
  Age: 35 Year
  Sex: Female

DRUGS (1)
  1. SANDOSTATIN LAR [Suspect]
     Indication: ACROMEGALY
     Dosage: 30 MG, QMO
     Route: 030
     Dates: start: 20050901, end: 20060801

REACTIONS (5)
  - ABORTION SPONTANEOUS [None]
  - ARTHRALGIA [None]
  - BACK PAIN [None]
  - DRUG EXPOSURE BEFORE PREGNANCY [None]
  - INJECTION SITE PAIN [None]
